FAERS Safety Report 5255483-4 (Version None)
Quarter: 2007Q1

REPORT INFORMATION
  Report Type: 
  Country: None (occurrence: None)
  Receive Date: 20061201
  Receipt Date: 20060902
  Transmission Date: 20070707
  Serious: No
  Sender: FDA-Public Use
  Company Number: 2006PV020579

PATIENT
  Age: 52 Year
  Sex: Female

DRUGS (3)
  1. BYETTA [Suspect]
     Indication: DIABETES MELLITUS NON-INSULIN-DEPENDENT
     Dosage: 5 MCG;BID;SC
     Route: 058
     Dates: start: 20060810
  2. METFORMIN HCL [Concomitant]
  3. VERAPAMIL [Concomitant]

REACTIONS (10)
  - HEADACHE [None]
  - HYPOAESTHESIA [None]
  - INJECTION SITE BRUISING [None]
  - LIMB DISCOMFORT [None]
  - PALPITATIONS [None]
  - PARAESTHESIA [None]
  - TRANSIENT ISCHAEMIC ATTACK [None]
  - URINE ODOUR ABNORMAL [None]
  - VISION BLURRED [None]
  - VISUAL ACUITY REDUCED [None]
